FAERS Safety Report 19090109 (Version 1)
Quarter: 2021Q2

REPORT INFORMATION
  Report Type: Spontaneous
  Country: DE (occurrence: DE)
  Receive Date: 20210404
  Receipt Date: 20210404
  Transmission Date: 20210717
  Serious: Yes (Hospitalization, Other)
  Sender: FDA-Public Use
  Company Number: DE-JNJFOC-20210355878

PATIENT
  Age: 60 Year
  Sex: Female
  Weight: 71 kg

DRUGS (2)
  1. RIVAROXABAN [Suspect]
     Active Substance: RIVAROXABAN
     Indication: PULMONARY EMBOLISM
     Dosage: 1X TAGLICH
     Route: 048
     Dates: start: 20210201, end: 20210220
  2. ACICLOVIR [Concomitant]
     Active Substance: ACYCLOVIR
     Indication: HERPES ZOSTER
     Dosage: 2X DAILY; HAS BEEN TAKING FOR 2 YEARS
     Route: 048

REACTIONS (4)
  - Soft tissue haemorrhage [Recovering/Resolving]
  - Thrombocytopenia [Recovering/Resolving]
  - Mouth haemorrhage [Recovering/Resolving]
  - Asthenia [Not Recovered/Not Resolved]

NARRATIVE: CASE EVENT DATE: 20210220
